FAERS Safety Report 24174976 (Version 3)
Quarter: 2024Q4

REPORT INFORMATION
  Report Type: Report from Study
  Country: US (occurrence: US)
  Receive Date: 20240805
  Receipt Date: 20241009
  Transmission Date: 20250115
  Serious: Yes (Hospitalization)
  Sender: TAKEDA
  Company Number: US-SHIRE-US201905081

PATIENT
  Age: 61 Year
  Sex: Female

DRUGS (16)
  1. TEDUGLUTIDE [Suspect]
     Active Substance: TEDUGLUTIDE
     Indication: Short-bowel syndrome
     Dosage: 2.23 MILLIGRAM, QD
     Route: 058
     Dates: start: 20170127
  2. TEDUGLUTIDE [Suspect]
     Active Substance: TEDUGLUTIDE
     Indication: Short-bowel syndrome
     Dosage: 2.23 MILLIGRAM, QD
     Route: 058
     Dates: start: 20170127
  3. TEDUGLUTIDE [Suspect]
     Active Substance: TEDUGLUTIDE
     Indication: Short-bowel syndrome
     Dosage: 2.23 MILLIGRAM, QD
     Route: 058
     Dates: start: 20170127
  4. TEDUGLUTIDE [Suspect]
     Active Substance: TEDUGLUTIDE
     Indication: Short-bowel syndrome
     Dosage: 2.23 MILLIGRAM, QD
     Route: 058
     Dates: start: 20170127
  5. TEDUGLUTIDE [Suspect]
     Active Substance: TEDUGLUTIDE
     Dosage: 2.73 MILLIGRAM, QD
     Route: 058
     Dates: start: 202405
  6. TEDUGLUTIDE [Suspect]
     Active Substance: TEDUGLUTIDE
     Dosage: 2.73 MILLIGRAM, QD
     Route: 058
     Dates: start: 202405
  7. TEDUGLUTIDE [Suspect]
     Active Substance: TEDUGLUTIDE
     Dosage: 2.73 MILLIGRAM, QD
     Route: 058
     Dates: start: 202405
  8. TEDUGLUTIDE [Suspect]
     Active Substance: TEDUGLUTIDE
     Dosage: 2.73 MILLIGRAM, QD
     Route: 058
     Dates: start: 202405
  9. TEDUGLUTIDE [Suspect]
     Active Substance: TEDUGLUTIDE
     Dosage: 0.273 MILLILITER, QD
     Route: 058
     Dates: start: 202408
  10. TEDUGLUTIDE [Suspect]
     Active Substance: TEDUGLUTIDE
     Dosage: 0.273 MILLILITER, QD
     Route: 058
     Dates: start: 202408
  11. TEDUGLUTIDE [Suspect]
     Active Substance: TEDUGLUTIDE
     Dosage: 0.273 MILLILITER, QD
     Route: 058
     Dates: start: 202408
  12. TEDUGLUTIDE [Suspect]
     Active Substance: TEDUGLUTIDE
     Dosage: 0.273 MILLILITER, QD
     Route: 058
     Dates: start: 202408
  13. TEDUGLUTIDE [Suspect]
     Active Substance: TEDUGLUTIDE
     Dosage: 2.73 MILLIGRAM, QD
     Route: 058
     Dates: start: 20240805
  14. TEDUGLUTIDE [Suspect]
     Active Substance: TEDUGLUTIDE
     Dosage: 2.73 MILLIGRAM, QD
     Route: 058
     Dates: start: 20240805
  15. TEDUGLUTIDE [Suspect]
     Active Substance: TEDUGLUTIDE
     Dosage: 2.73 MILLIGRAM, QD
     Route: 058
     Dates: start: 20240805
  16. TEDUGLUTIDE [Suspect]
     Active Substance: TEDUGLUTIDE
     Dosage: 2.73 MILLIGRAM, QD
     Route: 058
     Dates: start: 20240805

REACTIONS (2)
  - Viral infection [Unknown]
  - Product dose omission issue [Unknown]

NARRATIVE: CASE EVENT DATE: 20190201
